FAERS Safety Report 12661519 (Version 3)
Quarter: 2017Q1

REPORT INFORMATION
  Report Type: Spontaneous
  Country: US (occurrence: US)
  Receive Date: 20160817
  Receipt Date: 20170111
  Transmission Date: 20170428
  Serious: No
  Sender: FDA-Public Use
  Company Number: US-PFIZER INC-2016386736

PATIENT
  Age: 76 Year
  Sex: Female
  Weight: 77 kg

DRUGS (15)
  1. LYRICA [Suspect]
     Active Substance: PREGABALIN
     Dosage: 150 MG, 2X/DAY
     Route: 048
  2. TRAZODONE [Concomitant]
     Active Substance: TRAZODONE HYDROCHLORIDE
     Indication: INSOMNIA
     Dosage: 1 TABLET BY MOUTH AT BEDTIME
     Route: 048
  3. GLIPIZIDE. [Concomitant]
     Active Substance: GLIPIZIDE
     Dosage: UNK
  4. NIFEDICAL XL [Concomitant]
     Active Substance: NIFEDIPINE
     Dosage: 30 MG, 1 TABLET EVERY DAY BY ORAL ROUTE
     Route: 048
  5. PANTOPRAZOLE [Concomitant]
     Active Substance: PANTOPRAZOLE SODIUM
     Dosage: UNK
  6. KLOR-CON [Concomitant]
     Active Substance: POTASSIUM CHLORIDE
     Dosage: 20 MEQ, 4X/DAY
     Route: 048
  7. METFORMIN [Concomitant]
     Active Substance: METFORMIN HYDROCHLORIDE
     Dosage: UNK
  8. ASPIRIN. [Concomitant]
     Active Substance: ASPIRIN
     Dosage: 81 MG, UNK
  9. FERROUS SULFATE. [Concomitant]
     Active Substance: FERROUS SULFATE
     Dosage: 325 MG, 2X/DAY
     Route: 048
  10. HYDROCHLOROTHIAZIDE. [Concomitant]
     Active Substance: HYDROCHLOROTHIAZIDE
     Dosage: UNK
  11. AMBIEN [Concomitant]
     Active Substance: ZOLPIDEM TARTRATE
     Dosage: 5 MG, 1X/DAY
  12. LYRICA [Suspect]
     Active Substance: PREGABALIN
     Indication: NEUROPATHY PERIPHERAL
     Dosage: 75 MG, 2X/DAY
     Route: 048
  13. AMBIEN [Concomitant]
     Active Substance: ZOLPIDEM TARTRATE
     Dosage: 10 MG, 1X/DAY (HS)
  14. ATENOLOL. [Concomitant]
     Active Substance: ATENOLOL
     Dosage: 250 MG, DAILY
  15. DOXAZOCIN [Concomitant]
     Active Substance: DOXAZOSIN MESYLATE
     Dosage: UNK

REACTIONS (10)
  - Peripheral swelling [Unknown]
  - Anxiety [Unknown]
  - Sleep disorder [Unknown]
  - Hypoaesthesia [Unknown]
  - Depression [Unknown]
  - Paraesthesia [Unknown]
  - Pain in extremity [Unknown]
  - Formication [Recovering/Resolving]
  - Burning sensation [Unknown]
  - Weight increased [Not Recovered/Not Resolved]
